FAERS Safety Report 6348292-6 (Version None)
Quarter: 2009Q3

REPORT INFORMATION
  Report Type: 
  Country: None (occurrence: None)
  Receive Date: 20090908
  Receipt Date: 20090825
  Transmission Date: 20100115
  Serious: Yes (Death, Life-Threatening)
  Sender: FDA-Public Use
  Company Number: CLOF-1000345

PATIENT
  Sex: Male

DRUGS (33)
  1. EVOLTRA       (CLOFARABINE) [Suspect]
     Indication: ACUTE MYELOID LEUKAEMIA
     Dosage: 35 MG, QD, INTRAVENOUS
     Route: 042
     Dates: start: 20081112, end: 20081113
  2. DAUNORUBICIN HCL [Suspect]
     Indication: ACUTE MYELOID LEUKAEMIA
     Dosage: 88 MG,INTRAVENOUS
     Route: 042
     Dates: start: 20081112
  3. MYLOTARG [Suspect]
     Indication: ACUTE MYELOID LEUKAEMIA
     Dosage: 5 MG, NTRAVENOUS
     Route: 042
     Dates: start: 20081112
  4. ALLOPURINOL [Concomitant]
  5. HYDROXYUREA [Concomitant]
  6. METOCLOPRAMIDE (METOCLOPRAMIDE HYDROCHLORIDE) [Concomitant]
  7. LANSOPRAZOLE [Concomitant]
  8. DICLOFENAC SODIUM [Concomitant]
  9. FLUCLOXACILLIN (FLUCLOXACILLIN SODIUM) [Concomitant]
  10. AMILORIDE (AMILORIDE) [Concomitant]
  11. PARACETAMOL (PROMETHAZINE HYDROCHLORIDE) [Concomitant]
  12. FUROSEMIDE (FUROSEMIDE SODIUM) [Concomitant]
  13. HYDROCORTONE [Concomitant]
  14. CHLORPHENIRAMINE TAB [Concomitant]
  15. PIPERACILLIN SODIUM AND TAZOBACTAM SODIUM [Concomitant]
  16. GENTAMYCIN-MP (GENTAMICIN SULFATE) [Concomitant]
  17. RASBURICASE (RASBURICASE) [Concomitant]
  18. METRONIDAZOLE (METRONIDAZOLE SODIUM) [Concomitant]
  19. TRAMADOL HCL [Concomitant]
  20. ALFACALCIDOL (ALFACALCIDOL) [Concomitant]
  21. ALU-CAP (ALUMINIUM HYDROXIDE GEL, DRIED) [Concomitant]
  22. FILGRASTIM (FILGRASTIM) [Concomitant]
  23. FLUCONAZOLE [Concomitant]
  24. CODEINE PHOSPHATE AND ACETAMINOPHEN [Concomitant]
  25. HYOSCINE HBR HYT [Concomitant]
  26. TEICOPLANIN (TEICOPLANIN) [Concomitant]
  27. MEROPENEM (MEROPENEM) [Concomitant]
  28. GELOFUSINE (POLYGELINE, POTASSIUM CHLORIDE, SODIUM CHLORIDE) [Concomitant]
  29. SODIUM BICARBONATE IN PLASTIC CONTAINER [Concomitant]
  30. ALBUMIN (HUMAN) [Concomitant]
  31. ANTIHEMOPHILIC FACTOR (HUMAN) [Concomitant]
  32. WHOLE BLOOD [Concomitant]
  33. PLATELETS (PLATELETS) [Concomitant]

REACTIONS (21)
  - ANAEMIA [None]
  - BLAST CELL COUNT INCREASED [None]
  - BRAIN OEDEMA [None]
  - CARDIAC FAILURE [None]
  - DIARRHOEA [None]
  - ELECTROLYTE IMBALANCE [None]
  - FALL [None]
  - GENERAL PHYSICAL HEALTH DETERIORATION [None]
  - HAEMORRHAGE INTRACRANIAL [None]
  - HYPOTENSION [None]
  - INTRACRANIAL PRESSURE INCREASED [None]
  - LOCALISED INTRAABDOMINAL FLUID COLLECTION [None]
  - MUSCULAR WEAKNESS [None]
  - NEPHROPATHY TOXIC [None]
  - OEDEMA PERIPHERAL [None]
  - PYREXIA [None]
  - RALES [None]
  - RENAL FAILURE ACUTE [None]
  - RIGHT VENTRICULAR FAILURE [None]
  - SEPSIS [None]
  - TUMOUR LYSIS SYNDROME [None]
